FAERS Safety Report 20518873 (Version 2)
Quarter: 2022Q1

REPORT INFORMATION
  Report Type: Report from Study
  Country: US (occurrence: None)
  Receive Date: 20220225
  Receipt Date: 20220329
  Transmission Date: 20220423
  Serious: Yes (Hospitalization)
  Sender: FDA-Public Use
  Company Number: US-Eisai Medical Research-EC-2022-108183

PATIENT
  Age: 83 Year
  Sex: Female

DRUGS (2)
  1. LENVIMA [Suspect]
     Active Substance: LENVATINIB
     Indication: Uterine cancer
     Route: 048
     Dates: start: 20220128
  2. KEYTRUDA [Concomitant]
     Active Substance: PEMBROLIZUMAB

REACTIONS (7)
  - Hypertension [Not Recovered/Not Resolved]
  - Diarrhoea [Recovered/Resolved]
  - Musculoskeletal chest pain [Recovered/Resolved]
  - Musculoskeletal pain [Recovered/Resolved]
  - Nausea [Not Recovered/Not Resolved]
  - Dysphonia [Recovering/Resolving]
  - Fatigue [Unknown]

NARRATIVE: CASE EVENT DATE: 20220128
